FAERS Safety Report 7365232-1 (Version None)
Quarter: 2011Q1

REPORT INFORMATION
  Report Type: 
  Country: None (occurrence: None)
  Receive Date: 20110322
  Receipt Date: 20110316
  Transmission Date: 20110831
  Serious: Yes (Disabling)
  Sender: FDA-Public Use
  Company Number: GB-SP-2011-00038

PATIENT
  Sex: Male

DRUGS (6)
  1. SIMVASTATIN [Concomitant]
     Route: 048
  2. IMMUCYST [Suspect]
     Indication: BLADDER TRANSITIONAL CELL CARCINOMA
     Route: 065
     Dates: start: 20100831, end: 20101221
  3. BENDROFLUMETHIAZIDE [Concomitant]
     Route: 048
  4. ATENOLOL [Concomitant]
     Route: 048
  5. CORACTEN XL [Concomitant]
     Route: 048
  6. ASPIRIN [Concomitant]
     Route: 048

REACTIONS (6)
  - ARTHRITIS REACTIVE [None]
  - INJURY [None]
  - OCULAR HYPERAEMIA [None]
  - C-REACTIVE PROTEIN INCREASED [None]
  - DRUG INTOLERANCE [None]
  - PYREXIA [None]
